FAERS Safety Report 24732108 (Version 2)
Quarter: 2025Q2

REPORT INFORMATION
  Report Type: Report from Study
  Country: PH (occurrence: PH)
  Receive Date: 20241213
  Receipt Date: 20250602
  Transmission Date: 20250717
  Serious: Yes (Other)
  Sender: TAKEDA
  Company Number: PH-TAKEDA-2024TUS119044

PATIENT
  Sex: Female

DRUGS (1)
  1. VEDOLIZUMAB [Suspect]
     Active Substance: VEDOLIZUMAB
     Indication: Crohn^s disease

REACTIONS (3)
  - Rheumatoid arthritis [Unknown]
  - Nasopharyngitis [Recovering/Resolving]
  - Inappropriate schedule of product administration [Unknown]
